FAERS Safety Report 7585780-9 (Version None)
Quarter: 2011Q3

REPORT INFORMATION
  Report Type: 
  Country: None (occurrence: None)
  Receive Date: 20110701
  Receipt Date: 20110616
  Transmission Date: 20111222
  Serious: Yes (Hospitalization)
  Sender: FDA-Public Use
  Company Number: US-BAYER-2011-003484

PATIENT
  Age: 23 Year
  Sex: Female
  Weight: 80 kg

DRUGS (17)
  1. YASMIN [Suspect]
     Indication: CONTRACEPTION
  2. YASMIN [Suspect]
     Indication: MENOMETRORRHAGIA
  3. NAPROXEN [Concomitant]
     Indication: PAIN MANAGEMENT
     Dosage: 500 MG, BID
     Dates: start: 20070220, end: 20070304
  4. ULTRAM [Concomitant]
     Indication: PAIN MANAGEMENT
     Dosage: 50 MG, QD
     Dates: start: 20070220, end: 20070304
  5. NSAID'S [Concomitant]
     Dosage: UNK UNK, PRN
     Dates: start: 20030101
  6. MULTI-VITAMINS [Concomitant]
  7. YASMIN [Suspect]
     Indication: ACNE
     Dosage: UNK
     Dates: start: 20051001, end: 20070301
  8. FEXOFENADINE [Concomitant]
     Dosage: 180 MG, QD
  9. ASCORBIC ACID [Concomitant]
     Dosage: UNK
     Dates: start: 20020101
  10. SMZ-TMP [Concomitant]
  11. YASMIN [Suspect]
     Indication: MENSTRUATION IRREGULAR
  12. YASMIN [Suspect]
     Indication: ABDOMINAL PAIN
  13. YASMIN [Suspect]
     Indication: DYSMENORRHOEA
  14. CLINDAMYCIN [Concomitant]
     Indication: ACNE
     Dosage: UNK
     Dates: start: 20070101
  15. ELOCON [Concomitant]
     Indication: ECZEMA
     Dosage: UNK
     Dates: start: 19990101
  16. KETOCONAZOLE [Concomitant]
  17. ANTIBIOTICS [Concomitant]

REACTIONS (4)
  - FEAR [None]
  - INJURY [None]
  - ANXIETY [None]
  - DEEP VEIN THROMBOSIS [None]
